FAERS Safety Report 23198181 (Version 1)
Quarter: 2023Q4

REPORT INFORMATION
  Report Type: Spontaneous
  Country: US (occurrence: US)
  Receive Date: 20231117
  Receipt Date: 20231117
  Transmission Date: 20240110
  Serious: No
  Sender: FDA-Public Use
  Company Number: US-BRISTOL-MYERS SQUIBB COMPANY-2023-166397

PATIENT
  Age: 66 Year
  Sex: Male
  Weight: 106.14 kg

DRUGS (1)
  1. REVLIMID [Suspect]
     Active Substance: LENALIDOMIDE
     Indication: Lymphoma
     Dosage: 3W, 1W OFF
     Route: 048

REACTIONS (1)
  - Arthralgia [Recovered/Resolved]
